FAERS Safety Report 18361747 (Version 1)
Quarter: 2020Q4

REPORT INFORMATION
  Report Type: Spontaneous
  Country: FR (occurrence: FR)
  Receive Date: 20201008
  Receipt Date: 20201008
  Transmission Date: 20210114
  Serious: Yes (Life-Threatening, Hospitalization)
  Sender: FDA-Public Use
  Company Number: FR-ABBVIE-20K-056-3600965-00

PATIENT
  Age: 61 Year
  Sex: Male
  Weight: 67 kg

DRUGS (3)
  1. IMBRUVICA [Suspect]
     Active Substance: IBRUTINIB
     Route: 048
     Dates: start: 201909, end: 20200520
  2. IMBRUVICA [Suspect]
     Active Substance: IBRUTINIB
     Indication: CHRONIC LYMPHOCYTIC LEUKAEMIA
     Route: 048
     Dates: start: 201810, end: 201909
  3. IMBRUVICA [Suspect]
     Active Substance: IBRUTINIB
     Indication: CHRONIC LYMPHOCYTIC LEUKAEMIA
     Route: 048
     Dates: start: 20170920, end: 20180327

REACTIONS (2)
  - Atrial fibrillation [Recovered/Resolved]
  - Atrioventricular block second degree [Recovered/Resolved]

NARRATIVE: CASE EVENT DATE: 20200515
